FAERS Safety Report 20967529 (Version 8)
Quarter: 2024Q1

REPORT INFORMATION
  Report Type: Spontaneous
  Country: US (occurrence: US)
  Receive Date: 20220616
  Receipt Date: 20240311
  Transmission Date: 20240409
  Serious: No
  Sender: FDA-Public Use
  Company Number: US-PFIZER INC-202200722307

PATIENT
  Age: 66 Year
  Sex: Female
  Weight: 58.957 kg

DRUGS (5)
  1. IBRANCE [Suspect]
     Active Substance: PALBOCICLIB
     Indication: Breast cancer female
     Dosage: ONE DAILY/14 DAYS
     Route: 048
     Dates: start: 202111
  2. IBRANCE [Suspect]
     Active Substance: PALBOCICLIB
     Dosage: ONE TIME DAILY/DAY 1-14 THEN OFF FOR 14 DAYS
     Route: 048
     Dates: start: 20221012
  3. IBRANCE [Suspect]
     Active Substance: PALBOCICLIB
     Dosage: TAB ONE TIME DAILY DAYS 1 THROUGH 18 FOLLOWED BY 10 DAYS OFF
     Route: 048
  4. IBRANCE [Suspect]
     Active Substance: PALBOCICLIB
     Dosage: TAKE 1 TAB ONCE DAILY FOR 2 WKS THEN OFF 2 WKS
     Route: 048
  5. LETROZOLE [Concomitant]
     Active Substance: LETROZOLE
     Dosage: UNK
     Dates: start: 202111

REACTIONS (3)
  - Neutrophil count decreased [Recovering/Resolving]
  - Off label use [Unknown]
  - Product use issue [Unknown]
